FAERS Safety Report 5582467-9 (Version None)
Quarter: 2007Q4

REPORT INFORMATION
  Report Type: 
  Country: None (occurrence: None)
  Receive Date: 20071130
  Receipt Date: 20070201
  Transmission Date: 20080405
  Serious: Yes (Other)
  Sender: FDA-Public Use
  Company Number: WAES 0702USA00123

PATIENT
  Age: 74 Year
  Sex: Female
  Weight: 51.2565 kg

DRUGS (4)
  1. FOSAMAX [Suspect]
     Indication: OSTEOPOROSIS
     Dosage: 70 MG, PO
     Route: 048
     Dates: start: 20040401, end: 20060627
  2. AMBIEN [Concomitant]
  3. FOSAMAX PLUS D [Concomitant]
  4. VIOXX [Concomitant]

REACTIONS (9)
  - AGEUSIA [None]
  - DEPRESSION [None]
  - EXOSTOSIS [None]
  - NODULE [None]
  - ORAL TORUS [None]
  - OSTEOMYELITIS [None]
  - OSTEONECROSIS [None]
  - PHOBIA [None]
  - TOOTH DISORDER [None]
